FAERS Safety Report 6420833-X (Version None)
Quarter: 2009Q4

REPORT INFORMATION
  Report Type: 
  Country: None (occurrence: None)
  Receive Date: 20091030
  Receipt Date: 20091027
  Transmission Date: 20100525
  Serious: Yes (Life-Threatening, Hospitalization)
  Sender: FDA-Public Use
  Company Number: DE-SANOFI-SYNTHELABO-A04200901207

PATIENT
  Sex: Male
  Weight: 72 kg

DRUGS (6)
  1. ELOXATIN [Suspect]
     Indication: BILE DUCT CANCER
     Route: 041
     Dates: start: 20090814, end: 20090814
  2. BELOC ZOK [Concomitant]
     Indication: HYPERTENSIVE CARDIOMYOPATHY
     Dosage: UNK
     Route: 048
  3. SIMVASTATIN [Concomitant]
     Indication: HYPERLIPIDAEMIA
     Route: 048
  4. ASPIRIN [Concomitant]
     Indication: CORONARY ARTERY DISEASE
     Route: 048
  5. UVALYSAT [Concomitant]
     Indication: CHOLECYSTITIS CHRONIC
     Dosage: 3X20 (UNIT NOT PROVIDED) DAILY
     Route: 048
  6. NOVAMINSULFON [Concomitant]
     Indication: PAIN
     Dosage: 4X15 (UNIT NOT PROVIDED) DAILY
     Route: 048

REACTIONS (5)
  - HYPERSENSITIVITY [None]
  - HYPOTENSION [None]
  - RESPIRATORY FAILURE [None]
  - SYNCOPE [None]
  - TACHYARRHYTHMIA [None]
